FAERS Safety Report 6875268-2 (Version None)
Quarter: 2010Q3

REPORT INFORMATION
  Report Type: 
  Country: None (occurrence: None)
  Receive Date: 20100727
  Receipt Date: 20100715
  Transmission Date: 20110219
  Serious: Yes (Hospitalization)
  Sender: FDA-Public Use
  Company Number: FR-JNJFOC-20100705786

PATIENT
  Age: 52 Year
  Sex: Male

DRUGS (1)
  1. REMICADE [Suspect]
     Indication: CROHN'S DISEASE
     Dosage: RECEIVED 12 INFUSIONS
     Route: 042

REACTIONS (4)
  - ARTHRALGIA [None]
  - CYTOLYTIC HEPATITIS [None]
  - DRY MOUTH [None]
  - SICCA SYNDROME [None]
